FAERS Safety Report 13703017 (Version 1)
Quarter: 2017Q2

REPORT INFORMATION
  Report Type: Spontaneous
  Country: RO (occurrence: RO)
  Receive Date: 20170629
  Receipt Date: 20170629
  Transmission Date: 20170830
  Serious: Yes (Other)
  Sender: FDA-Public Use
  Company Number: RO-FRESENIUS KABI-FK201705526

PATIENT
  Age: 52 Year
  Sex: Female

DRUGS (3)
  1. VINBLASTINE (MANUFACTURER UNKNOWN) [Suspect]
     Active Substance: VINBLASTINE
     Indication: MALIGNANT MELANOMA
     Route: 065
     Dates: start: 201507, end: 201512
  2. CISPLATIN (MANUFACTURER UNKNOWN) [Suspect]
     Active Substance: CISPLATIN
     Indication: MALIGNANT MELANOMA
     Route: 065
     Dates: start: 201507, end: 201512
  3. DACARBAZINE (MANUFACTURER UNKNOWN) [Suspect]
     Active Substance: DACARBAZINE
     Indication: MALIGNANT MELANOMA
     Route: 065
     Dates: start: 201507, end: 201512

REACTIONS (1)
  - Lymph node tuberculosis [Recovered/Resolved]
